FAERS Safety Report 5774131-8 (Version None)
Quarter: 2008Q2

REPORT INFORMATION
  Report Type: 
  Country: None (occurrence: None)
  Receive Date: 20080616
  Receipt Date: 20080606
  Transmission Date: 20081010
  Serious: Yes (Hospitalization)
  Sender: FDA-Public Use
  Company Number: US-ABBOTT-08P-163-0456283-00

PATIENT
  Sex: Male
  Weight: 99.88 kg

DRUGS (7)
  1. HUMIRA [Suspect]
     Indication: CROHN'S DISEASE
  2. HUMIRA [Suspect]
  3. MORPHINE SULFATE [Concomitant]
     Indication: BREAKTHROUGH PAIN
     Dosage: EVERY 6 HOURS AS NEEDED
     Route: 048
  4. MORPHINE SULFATE [Concomitant]
     Indication: ABDOMINAL PAIN
     Route: 048
  5. DIMETICONE, ACTIVATED [Concomitant]
     Indication: CROHN'S DISEASE
     Route: 048
  6. RANITIDINE HYDROCHLORIDE [Concomitant]
     Indication: CROHN'S DISEASE
     Route: 048
  7. MS CONTINE [Concomitant]
     Indication: ABDOMINAL PAIN

REACTIONS (9)
  - CROHN'S DISEASE [None]
  - DIARRHOEA [None]
  - DRUG DOSE OMISSION [None]
  - DRUG EFFECT DECREASED [None]
  - FREQUENT BOWEL MOVEMENTS [None]
  - HAEMATOCHEZIA [None]
  - PAIN [None]
  - PROCEDURAL COMPLICATION [None]
  - PYREXIA [None]
